FAERS Safety Report 14946706 (Version 7)
Quarter: 2018Q3

REPORT INFORMATION
  Report Type: Report from Study
  Country: DE (occurrence: DE)
  Receive Date: 20180529
  Receipt Date: 20180824
  Transmission Date: 20181010
  Serious: Yes (Hospitalization)
  Sender: FDA-Public Use
  Company Number: DE-JNJFOC-20180529045

PATIENT
  Age: 63 Year
  Sex: Male
  Weight: 86.5 kg

DRUGS (9)
  1. IBRUTINIB [Suspect]
     Active Substance: IBRUTINIB
     Indication: CHRONIC LYMPHOCYTIC LEUKAEMIA
     Dosage: CYCLE1 ?12, 420 MG DAY 1?28 ONCE IN 28 DAYS AASP ER PROTOCOL
     Route: 048
     Dates: start: 20171128, end: 20180515
  2. ACICLOVIR [Concomitant]
     Active Substance: ACYCLOVIR
     Route: 048
     Dates: start: 20171128, end: 20180518
  3. METAMIZOLE [Concomitant]
     Active Substance: METAMIZOLE
     Route: 048
     Dates: start: 20171212
  4. OBINUTUZUMAB. [Suspect]
     Active Substance: OBINUTUZUMAB
     Indication: CHRONIC LYMPHOCYTIC LEUKAEMIA
     Dosage: Q28D (CYCLE 1:100 MG, DAY 1 (D1), 900 MG D2), D8+15 AS PER PROTOCOL.
     Route: 042
     Dates: start: 20171128, end: 20180418
  5. VENETOCLAX. [Suspect]
     Active Substance: VENETOCLAX
     Indication: CHRONIC LYMPHOCYTIC LEUKAEMIA
     Dosage: 20 MG ONCE IN 28 D (CYCLE 1: 20 MG (2 TABLETS AT 10 MG), D 22?28, Q 28 D
     Route: 048
     Dates: start: 20171219, end: 20180515
  6. EUTHYROX [Concomitant]
     Active Substance: LEVOTHYROXINE SODIUM
     Route: 048
  7. COTRIMAZOL [Concomitant]
     Route: 048
     Dates: start: 20171128, end: 20180518
  8. L?THYROXIN [Concomitant]
     Active Substance: LEVOTHYROXINE SODIUM
     Route: 065
  9. ALLOPURINOL. [Concomitant]
     Active Substance: ALLOPURINOL
     Route: 048
     Dates: start: 20171128, end: 20180518

REACTIONS (1)
  - Pulmonary fibrosis [Not Recovered/Not Resolved]

NARRATIVE: CASE EVENT DATE: 20180518
